FAERS Safety Report 8974235 (Version 1)
Quarter: 2012Q4

REPORT INFORMATION
  Report Type: Spontaneous
  Country: US (occurrence: None)
  Receive Date: 20121211
  Receipt Date: 20121211
  Transmission Date: 20130627
  Serious: Yes (Death)
  Sender: FDA-Public Use
  Company Number: DKLU1086945

PATIENT
  Age: 3 Year
  Sex: Female

DRUGS (5)
  1. SABRIL (FOR ORAL SOLUTION) (SABRIL) (VIGABATRIN) (500 MG, POWDER FOR ORAL SOLUTION) [Suspect]
     Indication: PRODUCT USED FOR UNKNOWN INDICATION
     Route: 048
     Dates: start: 201005
  2. TOPIRAMATE (TOPIRAMATE) [Concomitant]
  3. OXCARBAZEPINE (OXCARBAZEPINE) TABLET, 300MG [Concomitant]
  4. PHENOBARBITAL (PHENOBARBITAL) [Concomitant]
  5. VALIUM (DIAZEPAM) [Concomitant]

REACTIONS (1)
  - Death [None]
